FAERS Safety Report 10363403 (Version 1)
Quarter: 2014Q3

REPORT INFORMATION
  Report Type: Spontaneous
  Country: FR (occurrence: FR)
  Receive Date: 20140805
  Receipt Date: 20140805
  Transmission Date: 20150326
  Serious: Yes (Hospitalization, Other)
  Sender: FDA-Public Use
  Company Number: FR-PFIZER INC-2014214401

PATIENT
  Age: 68 Year
  Sex: Female

DRUGS (9)
  1. DEROXAT [Concomitant]
     Active Substance: PAROXETINE HYDROCHLORIDE
     Dosage: 20 MG, DAILY (1 DF DAILY)
  2. INEXIUM /01479302/ [Concomitant]
     Active Substance: ESOMEPRAZOLE MAGNESIUM
     Dosage: UNK
  3. LYRICA [Suspect]
     Active Substance: PREGABALIN
     Dosage: 100 MG, 2X/DAY
     Dates: start: 201310, end: 20140120
  4. ALPRAZOLAM MYLAN [Concomitant]
     Active Substance: ALPRAZOLAM
     Dosage: UNK
  5. COUMADINE [Concomitant]
     Active Substance: WARFARIN SODIUM
     Dosage: 1.25 MG, DAILY
  6. NOVATREX NOS [Concomitant]
     Active Substance: AZITHROMYCIN OR METHOTREXATE SODIUM
     Dosage: 2.5 MG TABLET, 4 DFS WEEKLY
     Route: 048
  7. ZOLPIDEM [Concomitant]
     Active Substance: ZOLPIDEM\ZOLPIDEM TARTRATE
  8. DIFFU K [Concomitant]
     Active Substance: POTASSIUM CHLORIDE
  9. CORTANCYL [Concomitant]
     Active Substance: PREDNISONE
     Dosage: 10 MG, DAILY

REACTIONS (6)
  - Delusion [Recovered/Resolved]
  - Oppositional defiant disorder [Unknown]
  - Abnormal behaviour [Recovered/Resolved]
  - Aggression [Recovered/Resolved]
  - Memory impairment [Recovered/Resolved]
  - Irritability [Recovered/Resolved]

NARRATIVE: CASE EVENT DATE: 201310
